FAERS Safety Report 17306221 (Version 1)
Quarter: 2020Q1

REPORT INFORMATION
  Report Type: Spontaneous
  Country: DE (occurrence: DE)
  Receive Date: 20200123
  Receipt Date: 20200123
  Transmission Date: 20200409
  Serious: Yes (Other)
  Sender: FDA-Public Use
  Company Number: DE-SUN PHARMACEUTICAL INDUSTRIES LTD-2020RR-233935

PATIENT
  Age: 58 Year
  Sex: Male
  Weight: 70 kg

DRUGS (5)
  1. CIPROFLOXACIN. [Suspect]
     Active Substance: CIPROFLOXACIN
     Dosage: 250 MG INSGESAMT 28 TABLETTEN
     Route: 065
     Dates: start: 20151029
  2. CIPROFLOXACIN. [Suspect]
     Active Substance: CIPROFLOXACIN
     Dosage: 250 MG INSGESAMT 10 TABLETTEN
     Route: 065
     Dates: start: 20150805
  3. CIPROFLOXACIN STADA 250 MG FILMTABLETTEN [Suspect]
     Active Substance: CIPROFLOXACIN HYDROCHLORIDE
     Indication: URINARY TRACT INFECTION
     Dosage: 250 MILLIGRAMS, TID
     Route: 065
     Dates: start: 20110926
  4. CIPROFLOXACIN. [Suspect]
     Active Substance: CIPROFLOXACIN
     Dosage: 2X250 MG INSGESAMT 28 TABLETTEN
     Route: 065
     Dates: start: 20151022
  5. CIPROFLOXACIN. [Suspect]
     Active Substance: CIPROFLOXACIN
     Indication: PRODUCT USED FOR UNKNOWN INDICATION
     Dosage: 500 MG INSGESAMT 10 TABLETTEN
     Route: 065
     Dates: start: 20140527

REACTIONS (32)
  - Memory impairment [Unknown]
  - Middle insomnia [Unknown]
  - Toxicity to various agents [Unknown]
  - Deafness [Not Recovered/Not Resolved]
  - Muscle tightness [Not Recovered/Not Resolved]
  - Tinnitus [Recovered/Resolved with Sequelae]
  - Myosclerosis [Not Recovered/Not Resolved]
  - Hypoaesthesia [Recovered/Resolved with Sequelae]
  - Carpal tunnel syndrome [Unknown]
  - Adverse reaction [Unknown]
  - Fatigue [Recovered/Resolved with Sequelae]
  - Depression [Unknown]
  - Mental fatigue [Unknown]
  - Muscle strain [Not Recovered/Not Resolved]
  - Dyspnoea exertional [Unknown]
  - Glare [Unknown]
  - Anxiety disorder [Unknown]
  - Spinal pain [Not Recovered/Not Resolved]
  - Sleep disorder [Unknown]
  - Hyperacusis [Unknown]
  - Headache [Unknown]
  - Nervousness [Unknown]
  - Insomnia [Unknown]
  - Pain in extremity [Unknown]
  - Disturbance in attention [Unknown]
  - Auditory disorder [Recovered/Resolved with Sequelae]
  - Cervicobrachial syndrome [Recovered/Resolved with Sequelae]
  - Condition aggravated [Unknown]
  - Sensory processing disorder [Unknown]
  - Gastrointestinal pain [Unknown]
  - Fatigue [Unknown]
  - Dyspnoea [Unknown]

NARRATIVE: CASE EVENT DATE: 2011
